FAERS Safety Report 11073124 (Version 2)
Quarter: 2015Q2

REPORT INFORMATION
  Report Type: Spontaneous
  Country: US (occurrence: US)
  Receive Date: 20150428
  Receipt Date: 20150609
  Transmission Date: 20150821
  Serious: No
  Sender: FDA-Public Use
  Company Number: US-GLAXOSMITHKLINE-US2015GSK056919

PATIENT
  Sex: Female
  Weight: 71.2 kg

DRUGS (14)
  1. ALBUTEROL SULFATE INHALATIONAL POWDER [Suspect]
     Active Substance: ALBUTEROL SULFATE
     Indication: PRODUCT USED FOR UNKNOWN INDICATION
     Dosage: 1 DF, QID
     Dates: start: 20101102
  2. FLONASE [Suspect]
     Active Substance: FLUTICASONE PROPIONATE
     Indication: PRODUCT USED FOR UNKNOWN INDICATION
     Dosage: 2 PUFF(S), QD
     Route: 045
     Dates: start: 20130514
  3. NITROSTAT [Concomitant]
     Active Substance: NITROGLYCERIN
  4. COMBIVENT RESPIMAT [Concomitant]
     Active Substance: ALBUTEROL SULFATE\IPRATROPIUM BROMIDE
  5. ERGOCALCIFEROL. [Concomitant]
     Active Substance: ERGOCALCIFEROL
  6. AMLODIPINE BESYLATE. [Concomitant]
     Active Substance: AMLODIPINE BESYLATE
  7. EPINEPHRINE. [Concomitant]
     Active Substance: EPINEPHRINE
  8. ADVAIR DISKUS [Suspect]
     Active Substance: FLUTICASONE PROPIONATE\SALMETEROL XINAFOATE
     Indication: PRODUCT USED FOR UNKNOWN INDICATION
     Dosage: 1 PUFF(S), BID
     Dates: start: 20110201
  9. SPIRIVA [Concomitant]
     Active Substance: TIOTROPIUM BROMIDE MONOHYDRATE
  10. PROAIR HFA [Concomitant]
     Active Substance: ALBUTEROL SULFATE
  11. BACLOFEN. [Concomitant]
     Active Substance: BACLOFEN
  12. ESTROGENS ESTERIFIED/METHYLTESTOSTERONE [Concomitant]
  13. ALPRAZOLAM. [Concomitant]
     Active Substance: ALPRAZOLAM
  14. ZYRTEC [Concomitant]
     Active Substance: CETIRIZINE HYDROCHLORIDE

REACTIONS (11)
  - Joint swelling [Unknown]
  - Increased upper airway secretion [Unknown]
  - Productive cough [Unknown]
  - Sputum discoloured [Unknown]
  - Dyspepsia [Unknown]
  - Anxiety [Unknown]
  - Surgery [Unknown]
  - Wheezing [Unknown]
  - Dyspnoea exertional [Unknown]
  - Back pain [Unknown]
  - Dyspnoea [Unknown]
